FAERS Safety Report 23234934 (Version 2)
Quarter: 2023Q4

REPORT INFORMATION
  Report Type: Spontaneous
  Country: CN (occurrence: CN)
  Receive Date: 20231128
  Receipt Date: 20231128
  Transmission Date: 20240110
  Serious: Yes (Other)
  Sender: FDA-Public Use
  Company Number: CN-009507513-2311CHN009071

PATIENT
  Age: 48 Year
  Sex: Female

DRUGS (15)
  1. KEYTRUDA [Suspect]
     Active Substance: PEMBROLIZUMAB
     Indication: Chemotherapy
     Dosage: 200 MG, ONCE
     Route: 041
     Dates: start: 20231020, end: 20231020
  2. KEYTRUDA [Suspect]
     Active Substance: PEMBROLIZUMAB
     Indication: Cervix carcinoma recurrent
  3. KEYTRUDA [Suspect]
     Active Substance: PEMBROLIZUMAB
     Indication: Ureteral stent insertion
  4. KEYTRUDA [Suspect]
     Active Substance: PEMBROLIZUMAB
     Indication: Colon cancer
  5. CARBOPLATIN [Suspect]
     Active Substance: CARBOPLATIN
     Indication: Chemotherapy
     Dosage: 500 MG, ONCE
     Route: 041
     Dates: start: 20231020, end: 20231020
  6. CARBOPLATIN [Suspect]
     Active Substance: CARBOPLATIN
     Indication: Cervix carcinoma recurrent
  7. CARBOPLATIN [Suspect]
     Active Substance: CARBOPLATIN
     Indication: Ureteral stent insertion
  8. CARBOPLATIN [Suspect]
     Active Substance: CARBOPLATIN
     Indication: Colon cancer
  9. PACLITAXEL [Suspect]
     Active Substance: PACLITAXEL
     Indication: Chemotherapy
     Dosage: 30 MG, ONCE
     Route: 041
     Dates: start: 20231020, end: 20231020
  10. PACLITAXEL [Suspect]
     Active Substance: PACLITAXEL
     Indication: Cervix carcinoma recurrent
  11. PACLITAXEL [Suspect]
     Active Substance: PACLITAXEL
     Indication: Ureteral stent insertion
  12. PACLITAXEL [Suspect]
     Active Substance: PACLITAXEL
     Indication: Colon cancer
  13. AVASTIN [Suspect]
     Active Substance: BEVACIZUMAB
     Indication: Chemotherapy
     Dosage: 500 MG, ONCE
     Route: 041
     Dates: start: 20231020, end: 20231020
  14. AVASTIN [Suspect]
     Active Substance: BEVACIZUMAB
     Indication: Cervix carcinoma recurrent
  15. AVASTIN [Suspect]
     Active Substance: BEVACIZUMAB
     Indication: Ureteral stent insertion

REACTIONS (4)
  - Myelosuppression [Recovered/Resolved]
  - Malignant neoplasm progression [Unknown]
  - Product use in unapproved indication [Unknown]
  - Product use issue [Unknown]

NARRATIVE: CASE EVENT DATE: 20230101
